FAERS Safety Report 8399433 (Version 2)
Quarter: 2012Q4

REPORT INFORMATION
  Report Type: Report from Study
  Country: JP (occurrence: JP)
  Receive Date: 20120210
  Receipt Date: 20120911
  Transmission Date: 20130627
  Serious: Yes (Death, Hospitalization)
  Sender: FDA-Public Use
  Company Number: JP-BRISTOL-MYERS SQUIBB COMPANY-16359895

PATIENT
  Age: 83 Year
  Sex: Male

DRUGS (6)
  1. ORENCIA FOR INJ 250 MG/VIAL [Suspect]
     Indication: RHEUMATOID ARTHRITIS
     Dosage: 16Aug11,29Aug1126Sep11,24Oct11,21Nov11,19Dec11.
     Route: 041
     Dates: start: 20110801
  2. MEROPENEM [Suspect]
  3. BENAMBAX [Suspect]
  4. PREDONINE [Concomitant]
     Dosage: 5mg:01Aug11-16Aug11,
4mg:29Aug11-19Dec11.
10mg:Unk.
     Dates: start: 20110801
  5. DECADRON [Concomitant]
  6. TACROLIMUS [Concomitant]

REACTIONS (3)
  - Interstitial lung disease [Fatal]
  - Myocardial infarction [Fatal]
  - Renal disorder [Fatal]
